FAERS Safety Report 8491361-5 (Version None)
Quarter: 2012Q3

REPORT INFORMATION
  Report Type: 
  Country: None (occurrence: None)
  Receive Date: 20120706
  Receipt Date: 20120704
  Transmission Date: 20120928
  Serious: Yes (Other)
  Sender: FDA-Public Use
  Company Number: PHFR2010GB02285

PATIENT
  Sex: Male

DRUGS (7)
  1. CLOZARIL [Suspect]
     Dosage: 300 MG/DAY
     Route: 048
     Dates: start: 20030101
  2. CLOZARIL [Suspect]
     Indication: SCHIZOPHRENIA, PARANOID TYPE
     Route: 048
     Dates: start: 20000327
  3. FLUOXETINE [Concomitant]
     Indication: DEPRESSION
     Dosage: 80 MG/DAY
     Route: 048
     Dates: start: 20050101
  4. CLOZARIL [Suspect]
     Indication: SCHIZOPHRENIA
     Dosage: 300 MG/DAY
     Route: 048
     Dates: start: 20010701
  5. RANITIDINE [Concomitant]
     Route: 065
  6. DIAZEPAM [Concomitant]
     Indication: ANXIETY
     Dosage: 15 MG, PRN
     Route: 048
     Dates: start: 20090101
  7. ARIPIPRAZOLE [Concomitant]
     Indication: SCHIZOPHRENIA, PARANOID TYPE
     Dosage: 10 MG/DAY
     Route: 048
     Dates: start: 20090729

REACTIONS (6)
  - MYELOPROLIFERATIVE DISORDER [None]
  - CHRONIC MYELOID LEUKAEMIA [None]
  - EOSINOPHIL COUNT INCREASED [None]
  - WHITE BLOOD CELL COUNT INCREASED [None]
  - NEUTROPHIL COUNT INCREASED [None]
  - TESTICULAR MASS [None]
